FAERS Safety Report 14567381 (Version 2)
Quarter: 2018Q2

REPORT INFORMATION
  Report Type: Spontaneous
  Country: DE (occurrence: DE)
  Receive Date: 20180223
  Receipt Date: 20180618
  Transmission Date: 20180711
  Serious: Yes (Death, Hospitalization, Other)
  Sender: FDA-Public Use
  Company Number: DE-TEVA-2018-DE-859278

PATIENT
  Age: 74 Year
  Sex: Female
  Weight: 60 kg

DRUGS (4)
  1. PANTOZOL [Concomitant]
     Active Substance: PANTOPRAZOLE SODIUM
     Indication: PRODUCT USED FOR UNKNOWN INDICATION
     Dosage: 40 MILLIGRAM DAILY;
  2. IBUPROFEN. [Concomitant]
     Active Substance: IBUPROFEN
     Indication: PRODUCT USED FOR UNKNOWN INDICATION
     Dosage: 200 MILLIGRAM DAILY;
  3. GABAPENTIN. [Suspect]
     Active Substance: GABAPENTIN
     Indication: FACIAL PAIN
     Route: 048
     Dates: start: 201712, end: 201712
  4. THIAMIN [Concomitant]
     Active Substance: THIAMINE
     Indication: PRODUCT USED FOR UNKNOWN INDICATION
     Dosage: 100 MILLIGRAM DAILY;
     Route: 065

REACTIONS (27)
  - Malignant neoplasm progression [Fatal]
  - Haemoglobin decreased [Unknown]
  - Adjustment disorder [Unknown]
  - Cognitive disorder [Unknown]
  - Disorientation [Unknown]
  - Candida infection [Unknown]
  - Transfusion reaction [Unknown]
  - Poikilocytosis [Unknown]
  - Diarrhoea [Recovered/Resolved]
  - Pyrexia [Unknown]
  - Splenic lesion [Fatal]
  - Dyspnoea [Unknown]
  - Cachexia [Unknown]
  - Chromaturia [Unknown]
  - Malaise [Unknown]
  - Insomnia [Unknown]
  - Anisocytosis [Unknown]
  - Autoimmune haemolytic anaemia [Not Recovered/Not Resolved]
  - Depression [Unknown]
  - General physical health deterioration [Unknown]
  - Skin discolouration [Unknown]
  - Pulmonary embolism [Unknown]
  - Weight decreased [Unknown]
  - Autoimmune haemolytic anaemia [Not Recovered/Not Resolved]
  - Hepatic enzyme increased [Unknown]
  - Bone lesion [Fatal]
  - Asthenia [Unknown]

NARRATIVE: CASE EVENT DATE: 201712
